FAERS Safety Report 4614184-3 (Version None)
Quarter: 2005Q1

REPORT INFORMATION
  Report Type: 
  Country: None (occurrence: None)
  Receive Date: 20050316
  Receipt Date: 20050304
  Transmission Date: 20050727
  Serious: No
  Sender: FDA-Public Use
  Company Number: 2004CG02461

PATIENT
  Age: 45 Year
  Sex: Female
  Weight: 53 kg

DRUGS (3)
  1. ZOMIG-ZMT [Suspect]
     Indication: MIGRAINE
     Dates: end: 20041123
  2. NEURONTIN [Concomitant]
  3. ZOLOFT [Concomitant]

REACTIONS (9)
  - CEREBROVASCULAR ACCIDENT [None]
  - CONDITION AGGRAVATED [None]
  - DRUG EFFECT DECREASED [None]
  - FACIAL PAIN [None]
  - FACIAL PALSY [None]
  - MIGRAINE [None]
  - NAUSEA [None]
  - PAIN IN JAW [None]
  - SENSORY LOSS [None]
